FAERS Safety Report 4951754-7 (Version None)
Quarter: 2006Q1

REPORT INFORMATION
  Report Type: 
  Country: None (occurrence: None)
  Receive Date: 20060323
  Receipt Date: 20060314
  Transmission Date: 20060701
  Serious: Yes (Hospitalization)
  Sender: FDA-Public Use
  Company Number: FI-GLAXOSMITHKLINE-B0416630A

PATIENT

DRUGS (9)
  1. AVANDIA [Suspect]
     Dosage: 4MG PER DAY
     Route: 048
     Dates: start: 20060208, end: 20060306
  2. AMARYL [Concomitant]
     Dosage: 3MG PER DAY
  3. DIFORMIN RETARD [Concomitant]
  4. EMCONCOR [Concomitant]
  5. CARDACE [Concomitant]
     Dosage: 2TAB PER DAY
  6. NORVASC [Concomitant]
     Dosage: 10MG PER DAY
  7. PRIMASPAN [Concomitant]
     Dosage: 100MG PER DAY
  8. ISMOX [Concomitant]
     Dosage: 20MG PER DAY
  9. DIGOXIN [Concomitant]
     Dosage: .25MG PER DAY

REACTIONS (4)
  - CEREBROVASCULAR DISORDER [None]
  - DYSPNOEA [None]
  - OEDEMA [None]
  - PULMONARY VASCULAR DISORDER [None]
